FAERS Safety Report 9765463 (Version 1)
Quarter: 2013Q4

REPORT INFORMATION
  Report Type: Spontaneous
  Country: US (occurrence: US)
  Receive Date: 20131217
  Receipt Date: 20131217
  Transmission Date: 20140711
  Serious: No
  Sender: FDA-Public Use
  Company Number: US-BIOGENIDEC-2013BI110675

PATIENT
  Age: 51 Year
  Sex: Female

DRUGS (3)
  1. TECFIDERA [Suspect]
     Indication: MULTIPLE SCLEROSIS
     Route: 048
     Dates: start: 201303
  2. AMANTADINE [Concomitant]
  3. DETROL [Concomitant]

REACTIONS (3)
  - Adverse event [Not Recovered/Not Resolved]
  - Abdominal discomfort [Not Recovered/Not Resolved]
  - Flushing [Not Recovered/Not Resolved]
